FAERS Safety Report 13966363 (Version 2)
Quarter: 2017Q4

REPORT INFORMATION
  Report Type: Report from Study
  Country: None (occurrence: US)
  Receive Date: 20170913
  Receipt Date: 20171002
  Transmission Date: 20180320
  Serious: Yes (Hospitalization)
  Sender: FDA-Public Use
  Company Number: US-ABBVIE-17P-163-2095078-00

PATIENT
  Sex: Male

DRUGS (1)
  1. CREON [Suspect]
     Active Substance: PANCRELIPASE AMYLASE\PANCRELIPASE LIPASE\PANCRELIPASE PROTEASE
     Indication: PANCREATIC FAILURE
     Route: 048
     Dates: start: 20170724

REACTIONS (7)
  - Pneumonia [Unknown]
  - Sleep apnoea syndrome [Unknown]
  - Dyslipidaemia [Unknown]
  - Hyperthyroidism [Unknown]
  - Bronchiectasis [Unknown]
  - Glucose tolerance impaired [Unknown]
  - Asthma [Unknown]

NARRATIVE: CASE EVENT DATE: 2017
